FAERS Safety Report 5391881-6 (Version None)
Quarter: 2007Q3

REPORT INFORMATION
  Report Type: 
  Country: None (occurrence: None)
  Receive Date: 20070718
  Receipt Date: 20070710
  Transmission Date: 20080115
  Serious: Yes (Death)
  Sender: FDA-Public Use
  Company Number: US020602

PATIENT
  Age: 35 Year
  Sex: Female

DRUGS (1)
  1. ACTIQ [Suspect]
     Indication: PAIN
     Dosage: 800 UG BUCCAL
     Route: 002

REACTIONS (1)
  - DRUG TOXICITY [None]
